FAERS Safety Report 13189843 (Version 2)
Quarter: 2017Q2

REPORT INFORMATION
  Report Type: Spontaneous
  Country: RO (occurrence: RO)
  Receive Date: 20170206
  Receipt Date: 20170411
  Transmission Date: 20170830
  Serious: Yes (Death, Hospitalization)
  Sender: FDA-Public Use
  Company Number: RO-JNJFOC-20170203434

PATIENT
  Age: 64 Year
  Sex: Male
  Weight: 65 kg

DRUGS (2)
  1. IBRUTINIB [Suspect]
     Active Substance: IBRUTINIB
     Indication: MANTLE CELL LYMPHOMA
     Route: 048
     Dates: end: 20161225
  2. IBRUTINIB [Suspect]
     Active Substance: IBRUTINIB
     Indication: MANTLE CELL LYMPHOMA
     Route: 048
     Dates: start: 20151217, end: 201610

REACTIONS (4)
  - Non-Hodgkin^s lymphoma recurrent [Fatal]
  - Coma [Unknown]
  - Pseudomonal sepsis [Fatal]
  - Diarrhoea [Unknown]

NARRATIVE: CASE EVENT DATE: 201610
